FAERS Safety Report 8802593 (Version 1)
Quarter: 2012Q4

REPORT INFORMATION
  Report Type: 
  Country: DE (occurrence: DE)
  Receive Date: 20120921
  Receipt Date: 20120921
  Transmission Date: 20130627
  Serious: Yes (Hospitalization, Other)
  Sender: FDA-Public Use
  Company Number: PHHY2012DE080497

PATIENT
  Age: 43 Year
  Sex: Male

DRUGS (4)
  1. ROPINIROLE [Suspect]
     Indication: PARKINSON^S DISEASE
     Dosage: up to 90 mg per day
  2. LEVODOPA/BENSERAZIDE [Suspect]
     Indication: PARKINSON^S DISEASE
     Dosage: 1 DF per day
  3. AMANTADINE [Suspect]
     Indication: PARKINSON^S DISEASE
     Dosage: 300 mg per day
  4. RASAGILINE [Suspect]
     Indication: PARKINSON^S DISEASE
     Dosage: 1 mg per day

REACTIONS (11)
  - Impulse-control disorder [Recovered/Resolved]
  - Obsessive-compulsive disorder [Recovered/Resolved]
  - Cerebellar syndrome [Unknown]
  - Delusion [Recovered/Resolved]
  - Tremor [Unknown]
  - Freezing phenomenon [Unknown]
  - Hyperkinesia [Unknown]
  - Nuchal rigidity [Unknown]
  - Parkinsonian gait [Unknown]
  - Saccadic eye movement [Unknown]
  - Loss of control of legs [Unknown]
